FAERS Safety Report 7420478-9 (Version None)
Quarter: 2011Q2

REPORT INFORMATION
  Report Type: 
  Country: None (occurrence: None)
  Receive Date: 20110406
  Receipt Date: 20110325
  Transmission Date: 20111010
  Serious: Yes (Other)
  Sender: FDA-Public Use
  Company Number: FK201100550

PATIENT
  Age: 16 Year

DRUGS (3)
  1. CYCLOPHOSPHAMIDE [Concomitant]
  2. METHYLPREDNISOLONE SODIUM SUCCINATE [Suspect]
     Indication: PRODUCT USED FOR UNKNOWN INDICATION
     Dosage: 1 GM, /1.73M(2) FOR 3 DAYS, INTRAVENOUS
     Route: 042
  3. PREDNISOLONE [Concomitant]

REACTIONS (3)
  - HYPOTHERMIA [None]
  - BRADYCARDIA [None]
  - CONVULSION [None]
